FAERS Safety Report 5194675-X (Version None)
Quarter: 2006Q4

REPORT INFORMATION
  Report Type: 
  Country: None (occurrence: None)
  Receive Date: 20061229
  Receipt Date: 20061221
  Transmission Date: 20070319
  Serious: Yes (Hospitalization)
  Sender: FDA-Public Use
  Company Number: IT-BAYER-200616520GDS

PATIENT
  Age: 44 Year
  Sex: Female

DRUGS (2)
  1. CIPROFLOXACIN HYDROCHLORIDE [Suspect]
     Indication: BRONCHITIS ACUTE
     Dosage: TOTAL DAILY DOSE: 1000 MG
     Route: 048
     Dates: start: 20061127, end: 20061202
  2. CALCIUM CARBONATE W/D3 VITAMIN [Concomitant]
     Indication: DRUG USE FOR UNKNOWN INDICATION
     Dosage: UNIT DOSE: 880 IU
     Route: 048

REACTIONS (1)
  - MULTI-ORGAN FAILURE [None]
